FAERS Safety Report 15130528 (Version 2)
Quarter: 2018Q3

REPORT INFORMATION
  Report Type: Spontaneous
  Country: PH (occurrence: PH)
  Receive Date: 20180711
  Receipt Date: 20180720
  Transmission Date: 20181010
  Serious: Yes (Other)
  Sender: FDA-Public Use
  Company Number: PH-009507513-1807PHL002799

PATIENT

DRUGS (2)
  1. ENTECAVIR. [Suspect]
     Active Substance: ENTECAVIR
     Indication: HEPATITIS B
     Dosage: UNK
  2. KEYTRUDA [Suspect]
     Active Substance: PEMBROLIZUMAB
     Indication: HEPATOCELLULAR CARCINOMA
     Dosage: UNK
     Dates: start: 20180607

REACTIONS (4)
  - Product use in unapproved indication [Unknown]
  - Malignant neoplasm progression [Unknown]
  - Tumour hyperprogression [Unknown]
  - Hepatitis B [Unknown]

NARRATIVE: CASE EVENT DATE: 2018
